FAERS Safety Report 8157853-3 (Version None)
Quarter: 2012Q1

REPORT INFORMATION
  Report Type: 
  Country: None (occurrence: None)
  Receive Date: 20120222
  Receipt Date: 20120208
  Transmission Date: 20120608
  Serious: Yes (Other)
  Sender: FDA-Public Use
  Company Number: GR-ABBOTT-12P-066-0904603-00

PATIENT

DRUGS (4)
  1. ESOMEPRAZOLE [Concomitant]
     Indication: HELICOBACTER INFECTION
  2. METRONIDAZOLE [Concomitant]
     Indication: HELICOBACTER INFECTION
  3. AMOXICILLIN [Concomitant]
     Indication: HELICOBACTER INFECTION
  4. CLARITHROMYCIN [Suspect]
     Indication: HELICOBACTER INFECTION

REACTIONS (3)
  - ABDOMINAL DISTENSION [None]
  - ABDOMINAL PAIN UPPER [None]
  - ABDOMINAL DISCOMFORT [None]
